FAERS Safety Report 5034236-6 (Version None)
Quarter: 2006Q2

REPORT INFORMATION
  Report Type: 
  Country: None (occurrence: None)
  Receive Date: 20060621
  Receipt Date: 20060606
  Transmission Date: 20061013
  Serious: Yes (Hospitalization)
  Sender: FDA-Public Use
  Company Number: 432362

PATIENT
  Age: 12 Year
  Sex: Female
  Weight: 53.5 kg

DRUGS (3)
  1. ACCUTANE [Suspect]
     Indication: ACNE CYSTIC
     Dosage: 2 PER DAY ORAL
     Route: 048
     Dates: start: 20011023, end: 20021124
  2. ZYRTEC-D 12 HOUR [Concomitant]
  3. SINGULAIR [Concomitant]

REACTIONS (36)
  - ALLERGIC COLITIS [None]
  - ANXIETY [None]
  - ASTHMA [None]
  - BALANCE DISORDER [None]
  - BLOOD ALKALINE PHOSPHATASE DECREASED [None]
  - BLOOD POTASSIUM INCREASED [None]
  - BLOOD TRIGLYCERIDES INCREASED [None]
  - CHAPPED LIPS [None]
  - COLITIS [None]
  - CROHN'S DISEASE [None]
  - DIARRHOEA [None]
  - DISEASE RECURRENCE [None]
  - DRUG INTOLERANCE [None]
  - DRY SKIN [None]
  - DYSPEPSIA [None]
  - ECZEMA [None]
  - FEAR [None]
  - FOLLICULITIS [None]
  - FOOD ALLERGY [None]
  - GASTRITIS [None]
  - GASTROINTESTINAL HAEMORRHAGE [None]
  - GASTROOESOPHAGEAL REFLUX DISEASE [None]
  - HERPES SIMPLEX [None]
  - INFLAMMATORY BOWEL DISEASE [None]
  - IRON DEFICIENCY ANAEMIA [None]
  - IRRITABLE BOWEL SYNDROME [None]
  - JOINT SPRAIN [None]
  - NASAL CONGESTION [None]
  - NEUTROPHIL PERCENTAGE INCREASED [None]
  - PAIN IN EXTREMITY [None]
  - PHARYNGITIS STREPTOCOCCAL [None]
  - RECTAL HAEMORRHAGE [None]
  - RHINITIS [None]
  - SINUSITIS [None]
  - WEIGHT DECREASED [None]
  - WHITE BLOOD CELL COUNT INCREASED [None]
